FAERS Safety Report 17528960 (Version 2)
Quarter: 2020Q2

REPORT INFORMATION
  Report Type: Spontaneous
  Country: US (occurrence: US)
  Receive Date: 20200312
  Receipt Date: 20200504
  Transmission Date: 20200713
  Serious: Yes (Hospitalization)
  Sender: FDA-Public Use
  Company Number: US-ASTRAZENECA-2020SE35267

PATIENT
  Age: 212 Day
  Sex: Female
  Weight: 5.9 kg

DRUGS (4)
  1. SYNAGIS [Suspect]
     Active Substance: PALIVIZUMAB
     Indication: PREMATURE BABY
     Dosage: 89.0MG UNKNOWN
     Route: 030
     Dates: start: 20200110, end: 20200110
  2. SYNAGIS [Suspect]
     Active Substance: PALIVIZUMAB
     Indication: PREMATURE BABY
     Dosage: UNKNOWN
     Route: 030
     Dates: start: 20200320
  3. AMOXICILLIN. [Concomitant]
     Active Substance: AMOXICILLIN
     Route: 065
     Dates: start: 20200118, end: 20200128
  4. SYNAGIS [Suspect]
     Active Substance: PALIVIZUMAB
     Indication: PREMATURE BABY
     Route: 030

REACTIONS (3)
  - Bronchiolitis [Recovered/Resolved]
  - Respiratory tract infection [Unknown]
  - Otitis media [Unknown]

NARRATIVE: CASE EVENT DATE: 20200110
